FAERS Safety Report 8456705-9 (Version None)
Quarter: 2012Q2

REPORT INFORMATION
  Report Type: 
  Country: None (occurrence: None)
  Receive Date: 20120621
  Receipt Date: 20120611
  Transmission Date: 20120825
  Serious: Yes (Other)
  Sender: FDA-Public Use
  Company Number: IT-BRISTOL-MYERS SQUIBB COMPANY-16559858

PATIENT
  Age: 75 Year
  Sex: Male

DRUGS (2)
  1. ERBITUX [Suspect]
     Indication: PENILE MALIGNANT NEOPLASM
     Dosage: LOADING DOSE:400MG/M2,MAINTENANCE DOSE:250MG/M2 DAY1 AND 8
     Route: 042
     Dates: start: 20110901
  2. DOCETAXEL [Suspect]
     Indication: PENILE MALIGNANT NEOPLASM
     Dosage: DAY 1 AND 8,NO OF CYCLES:6
     Dates: start: 20110901

REACTIONS (4)
  - NEUTROPENIA [None]
  - MUCOSAL INFLAMMATION [None]
  - SKIN TOXICITY [None]
  - NECROSIS [None]
